FAERS Safety Report 24362908 (Version 1)
Quarter: 2024Q3

REPORT INFORMATION
  Report Type: Report from Study
  Country: PK (occurrence: PK)
  Receive Date: 20240925
  Receipt Date: 20240925
  Transmission Date: 20241016
  Serious: Yes (Other)
  Sender: ROCHE
  Company Number: PK-ROCHE-10000086908

PATIENT
  Age: 65 Year
  Sex: Male

DRUGS (1)
  1. MABTHERA [Suspect]
     Active Substance: RITUXIMAB
     Indication: Follicular lymphoma
     Route: 058
     Dates: start: 20240904

REACTIONS (1)
  - Follicular lymphoma [Unknown]

NARRATIVE: CASE EVENT DATE: 20240904
